FAERS Safety Report 17569341 (Version 6)
Quarter: 2020Q2

REPORT INFORMATION
  Report Type: Spontaneous
  Country: US (occurrence: US)
  Receive Date: 20200322
  Receipt Date: 20200529
  Transmission Date: 20200713
  Serious: Yes (Other)
  Sender: FDA-Public Use
  Company Number: US-BRISTOL-MYERS SQUIBB COMPANY-BMS-2020-023117

PATIENT
  Sex: Female

DRUGS (1)
  1. ORENCIA [Suspect]
     Active Substance: ABATACEPT
     Indication: RHEUMATOID ARTHRITIS
     Dosage: 125 MILLIGRAM, QWK
     Route: 058
     Dates: start: 202002

REACTIONS (13)
  - Peripheral swelling [Unknown]
  - Swollen tongue [Unknown]
  - Device leakage [Unknown]
  - Incorrect dose administered by device [Unknown]
  - Joint swelling [Unknown]
  - Fatigue [Unknown]
  - Dizziness [Unknown]
  - Depressed level of consciousness [Unknown]
  - Pain in extremity [Unknown]
  - Alopecia [Unknown]
  - Infective glossitis [Unknown]
  - Myalgia [Unknown]
  - Device malfunction [Unknown]
